FAERS Safety Report 26116505 (Version 1)
Quarter: 2025Q4

REPORT INFORMATION
  Report Type: Spontaneous
  Country: US (occurrence: None)
  Receive Date: 20251202
  Receipt Date: 20251202
  Transmission Date: 20260118
  Serious: Yes (Death)
  Sender: FDA-CTU
  Company Number: None

PATIENT
  Age: 55 Year
  Sex: Female

DRUGS (1)
  1. PALONOSETRON [Suspect]
     Active Substance: PALONOSETRON
     Dosage: 300MG  Q21D?

REACTIONS (1)
  - Death [None]
